FAERS Safety Report 8214327-9 (Version None)
Quarter: 2012Q1

REPORT INFORMATION
  Report Type: 
  Country: None (occurrence: None)
  Receive Date: 20120315
  Receipt Date: 20120315
  Transmission Date: 20120608
  Serious: Yes (Hospitalization)
  Sender: FDA-Public Use
  Company Number: None

PATIENT
  Age: 82 Year
  Sex: Male
  Weight: 72.7 kg

DRUGS (2)
  1. THEOPHYLLINE [Suspect]
     Indication: CHRONIC OBSTRUCTIVE PULMONARY DISEASE
     Dosage: 1/2 TAB BID PO
     Route: 048
     Dates: start: 20111214, end: 20120103
  2. THEOPHYLLINE [Suspect]
     Indication: ASTHMA

REACTIONS (2)
  - VENTRICULAR TACHYCARDIA [None]
  - TACHYARRHYTHMIA [None]
